FAERS Safety Report 22239639 (Version 1)
Quarter: 2023Q2

REPORT INFORMATION
  Report Type: Spontaneous
  Country: US (occurrence: None)
  Receive Date: 20230420
  Receipt Date: 20230420
  Transmission Date: 20230721
  Serious: No
  Sender: FDA-Public Use
  Company Number: None

PATIENT
  Age: 17 Year
  Sex: Female
  Weight: 65.25 kg

DRUGS (6)
  1. ICY HOT MEDICATED NO MESS APPLICATOR [Suspect]
     Active Substance: MENTHOL
     Indication: Product used for unknown indication
     Route: 061
     Dates: start: 20230420, end: 20230420
  2. SINGULAIR [Concomitant]
     Active Substance: MONTELUKAST SODIUM
  3. depo provera ci [Concomitant]
  4. medinatura t relief [Concomitant]
  5. sporadic ibuprofen [Concomitant]
  6. TYLENOL [Concomitant]

REACTIONS (4)
  - Application site pain [None]
  - Application site rash [None]
  - Application site erythema [None]
  - Application site pain [None]

NARRATIVE: CASE EVENT DATE: 20230420
